FAERS Safety Report 4510321-X (Version None)
Quarter: 2004Q4

REPORT INFORMATION
  Report Type: 
  Country: None (occurrence: None)
  Receive Date: 20041124
  Receipt Date: 20041118
  Transmission Date: 20050328
  Serious: Yes (Life-Threatening, Hospitalization, Disabling)
  Sender: FDA-Public Use
  Company Number: US-MERCK-0411USA03257

PATIENT
  Age: 57 Year
  Sex: Female

DRUGS (10)
  1. VIOXX [Suspect]
     Indication: ARTHRITIS
     Route: 048
     Dates: start: 20000101, end: 20040910
  2. PREMARIN [Concomitant]
     Route: 065
  3. LEVOXYL [Concomitant]
     Route: 065
  4. LASIX [Concomitant]
     Route: 065
  5. LOTREL [Concomitant]
     Route: 065
  6. PREVACID [Concomitant]
     Route: 065
  7. PROZAC [Concomitant]
     Route: 065
  8. ISOSORBIDE [Concomitant]
     Route: 065
  9. POTASSIUM (UNSPECIFIED) [Concomitant]
     Route: 065
  10. CALCIUM (UNSPECIFIED) [Concomitant]
     Route: 065

REACTIONS (4)
  - CORONARY ARTERY DISEASE [None]
  - DIARRHOEA [None]
  - GENERALISED OEDEMA [None]
  - SWELLING [None]
